FAERS Safety Report 13828751 (Version 1)
Quarter: 2017Q3

REPORT INFORMATION
  Report Type: Spontaneous
  Country: US (occurrence: US)
  Receive Date: 20170803
  Receipt Date: 20170803
  Transmission Date: 20171127
  Serious: No
  Sender: FDA-Public Use
  Company Number: US-TEVA-717553ACC

PATIENT
  Age: 20 Year
  Sex: Female
  Weight: 56.75 kg

DRUGS (1)
  1. NEXT CHOICE ONE DOSE [Suspect]
     Active Substance: LEVONORGESTREL
     Indication: CONTRACEPTION
     Dates: start: 20161005

REACTIONS (2)
  - Muscle spasms [Unknown]
  - Abdominal distension [Unknown]

NARRATIVE: CASE EVENT DATE: 20161006
